FAERS Safety Report 17254080 (Version 1)
Quarter: 2019Q4

REPORT INFORMATION
  Report Type: Spontaneous
  Country: US (occurrence: US)
  Receive Date: 20191216
  Receipt Date: 20191216
  Transmission Date: 20200122
  Serious: Yes (Hospitalization)
  Sender: FDA-Public Use
  Company Number: None

PATIENT
  Age: 60 Year
  Sex: Female

DRUGS (11)
  1. MULTIVITAMIN LIQ [Concomitant]
  2. ASPIRIN CHW [Concomitant]
  3. 10 MEQ CR [Concomitant]
  4. MAG OXIDE TAB [Concomitant]
  5. PANTOPRAZOLE TAB [Concomitant]
  6. SPIRONOLACT TAB [Concomitant]
  7. WARFARIN TAB [Concomitant]
  8. K-TAB [Concomitant]
     Active Substance: POTASSIUM CHLORIDE
  9. SILDENAFIL 20MG [Suspect]
     Active Substance: SILDENAFIL
     Indication: CORONARY ARTERY DISEASE
     Route: 048
     Dates: start: 20170525
  10. AMIDARONE TAB [Concomitant]
  11. METOPROL TAR TAB [Concomitant]

REACTIONS (1)
  - Pulmonary arterial hypertension [None]

NARRATIVE: CASE EVENT DATE: 20191208
